FAERS Safety Report 16827653 (Version 1)
Quarter: 2019Q3

REPORT INFORMATION
  Report Type: Spontaneous
  Country: US (occurrence: US)
  Receive Date: 20190919
  Receipt Date: 20190919
  Transmission Date: 20191005
  Serious: Yes (Other)
  Sender: FDA-Public Use
  Company Number: US-AGIOS-1909US01390

PATIENT

DRUGS (1)
  1. TIBSOVO [Suspect]
     Active Substance: IVOSIDENIB
     Indication: ACUTE MYELOID LEUKAEMIA
     Dosage: UNK

REACTIONS (4)
  - Quality of life decreased [Unknown]
  - Road traffic accident [Unknown]
  - Neck injury [Unknown]
  - Neuralgia [Unknown]
